FAERS Safety Report 7686072-X (Version None)
Quarter: 2011Q3

REPORT INFORMATION
  Report Type: 
  Country: None (occurrence: None)
  Receive Date: 20110816
  Receipt Date: 20110814
  Transmission Date: 20111222
  Serious: No
  Sender: FDA-Public Use
  Company Number: US-PFIZER INC-2011186390

PATIENT
  Sex: Female
  Weight: 86.1 kg

DRUGS (4)
  1. ADVIL LIQUI-GELS [Suspect]
     Indication: TOOTHACHE
     Dosage: 200 MG, UNK
     Route: 065
     Dates: start: 20110801
  2. TRAMADOL [Concomitant]
     Indication: TOOTHACHE
     Dosage: UNK
     Route: 065
  3. ADVIL LIQUI-GELS [Interacting]
     Dosage: 200 MG, UNK
     Route: 065
     Dates: start: 20110812
  4. IBUPROFEN [Interacting]
     Indication: TOOTHACHE
     Dosage: UNK
     Route: 065

REACTIONS (5)
  - DRUG INTERACTION [None]
  - OVERDOSE [None]
  - DISORIENTATION [None]
  - DIZZINESS [None]
  - ABDOMINAL PAIN UPPER [None]
